FAERS Safety Report 9843305 (Version 2)
Quarter: 2014Q1

REPORT INFORMATION
  Report Type: Not Available
  Country: JP (occurrence: JP)
  Receive Date: 20140125
  Receipt Date: 20140125
  Transmission Date: 20141002
  Serious: Yes (Life-Threatening, Hospitalization)
  Sender: FDA-Public Use
  Company Number: JP-LUPIN PHARMACEUTICALS INC.-2013-01882

PATIENT
  Age: 68 Year
  Sex: Male
  Weight: 62 kg

DRUGS (13)
  1. AMLODIPINE BESILATE TABLET 2.5MG (AMEL) [Suspect]
     Indication: HYPERTENSION
     Dates: end: 20131027
  2. BAYASPIRIN [Concomitant]
     Indication: CORONARY ARTERIAL STENT INSERTION
     Route: 048
  3. PLAVIX [Concomitant]
     Indication: CORONARY ARTERIAL STENT INSERTION
     Route: 048
     Dates: end: 20131027
  4. PARIET [Concomitant]
     Indication: PROPHYLAXIS AGAINST GASTROINTESTINAL ULCER
     Route: 048
     Dates: end: 20131027
  5. LIPITOR [Concomitant]
     Indication: HYPERLIPIDAEMIA
     Route: 048
     Dates: end: 20131027
  6. MECOBALAMIN TABLET 0.5MG [Concomitant]
     Indication: PRODUCT USED FOR UNKNOWN INDICATION
     Route: 065
  7. MICARDIS [Concomitant]
     Indication: HYPERTENSION
     Route: 048
     Dates: end: 20131027
  8. NICHI E NATE (JUVELA N) CAPSULE 100 MG [Concomitant]
     Indication: PRODUCT USED FOR UNKNOWN INDICATION
     Route: 065
  9. METGLUCO [Concomitant]
     Indication: DIABETES MELLITUS
     Route: 048
     Dates: end: 20131027
  10. FLOMOX [Concomitant]
     Indication: NASOPHARYNGITIS
     Route: 048
     Dates: start: 20131022, end: 20131027
  11. PL COMBINATION GRANULE [Concomitant]
     Indication: PRODUCT USED FOR UNKNOWN INDICATION
     Route: 065
  12. ROKIFEN [Concomitant]
     Indication: ANTIPYRESIS
     Route: 048
     Dates: start: 20131022, end: 20131027
  13. PIVOXIL [Concomitant]
     Indication: PRODUCT USED FOR UNKNOWN INDICATION
     Route: 065

REACTIONS (8)
  - Hyponatraemia [Recovering/Resolving]
  - Malnutrition [Recovering/Resolving]
  - Hepatic function abnormal [Recovering/Resolving]
  - Rash [Unknown]
  - Urticaria [None]
  - Lymphadenopathy [None]
  - Pyrexia [None]
  - Erythema [None]
